FAERS Safety Report 8402244-0 (Version None)
Quarter: 2012Q2

REPORT INFORMATION
  Report Type: 
  Country: None (occurrence: None)
  Receive Date: 20120529
  Receipt Date: 20040202
  Transmission Date: 20120825
  Serious: Yes (Hospitalization)
  Sender: FDA-Public Use
  Company Number: 02100-JPN-04-0023

PATIENT
  Age: 66 Year
  Sex: Female

DRUGS (6)
  1. DEPAS (ETIZOLAM) TABLET [Concomitant]
  2. BUP-4 (PROPIVERINE HYDROCHLORIDE) TABLET [Concomitant]
  3. SYMMETREL [Concomitant]
  4. NIVADIL (NILVADIPINE) TABLET [Concomitant]
  5. EPADEL (ETHYL ICOSEPENTATE) CAPSULE [Concomitant]
  6. PLETAL [Suspect]
     Indication: CEREBRAL INFARCTION
     Dosage: 100 MG, BID, ORAL
     Route: 048
     Dates: start: 20030601, end: 20040106

REACTIONS (5)
  - CEREBRAL HAEMORRHAGE [None]
  - BLOOD FIBRINOGEN INCREASED [None]
  - ACTIVATED PARTIAL THROMBOPLASTIN TIME SHORTENED [None]
  - BLEEDING TIME PROLONGED [None]
  - PARALYSIS [None]
